FAERS Safety Report 12375139 (Version 1)
Quarter: 2016Q2

REPORT INFORMATION
  Report Type: Spontaneous
  Country: ES (occurrence: ES)
  Receive Date: 20160517
  Receipt Date: 20160517
  Transmission Date: 20160815
  Serious: Yes (Other)
  Sender: FDA-Public Use
  Company Number: ES-009507513-1605ESP005004

PATIENT
  Age: 77 Year
  Sex: Male
  Weight: 70 kg

DRUGS (2)
  1. AZILECT [Concomitant]
     Active Substance: RASAGILINE MESYLATE
     Indication: PARKINSON^S DISEASE
     Dosage: 1MG 1 TIME PER DAY
     Dates: start: 20120403
  2. SINEMET PLUS 25/100 MG COMPRIMIDOS [Suspect]
     Active Substance: CARBIDOPA\LEVODOPA
     Indication: PARKINSON^S DISEASE
     Dosage: 25/100MG  1 DOSE EVERY 8 HOURS
     Route: 048
     Dates: start: 20130403

REACTIONS (3)
  - Cough [Not Recovered/Not Resolved]
  - Nausea [Not Recovered/Not Resolved]
  - Throat irritation [Not Recovered/Not Resolved]

NARRATIVE: CASE EVENT DATE: 20150402
